FAERS Safety Report 5590251-5 (Version None)
Quarter: 2008Q1

REPORT INFORMATION
  Report Type: 
  Country: None (occurrence: None)
  Receive Date: 20080114
  Receipt Date: 20080103
  Transmission Date: 20080703
  Serious: Yes (Hospitalization)
  Sender: FDA-Public Use
  Company Number: FR-ASTRAZENECA-2008CG00009

PATIENT
  Age: 18 Year
  Sex: Female

DRUGS (7)
  1. PULMICORT [Suspect]
     Indication: ASTHMA
     Route: 055
  2. BRICANYL [Suspect]
     Indication: ASTHMA
     Route: 055
  3. ATROVENT [Suspect]
     Indication: ASTHMA
     Route: 055
  4. VENTOLIN [Suspect]
     Indication: ASTHMA
     Route: 055
  5. SOLUPRED [Concomitant]
     Route: 048
  6. CELESTONE [Concomitant]
     Route: 042
  7. ANAPEN [Concomitant]

REACTIONS (4)
  - DYSKINESIA [None]
  - LIP OEDEMA [None]
  - PRURITUS [None]
  - URTICARIA [None]
